FAERS Safety Report 4959221-1 (Version None)
Quarter: 2006Q1

REPORT INFORMATION
  Report Type: 
  Country: None (occurrence: None)
  Receive Date: 20060127
  Receipt Date: 20050922
  Transmission Date: 20060701
  Serious: Yes (Hospitalization)
  Sender: FDA-Public Use
  Company Number: 2005-US-00145

PATIENT
  Age: 59 Year
  Sex: Male

DRUGS (1)
  1. CLOZAPINE [Suspect]
     Indication: AFFECTIVE DISORDER
     Dosage: 200 MG, QD, ORAL
     Route: 048
     Dates: start: 20040801

REACTIONS (2)
  - BODY TEMPERATURE INCREASED [None]
  - LETHARGY [None]
